FAERS Safety Report 24298095 (Version 2)
Quarter: 2025Q3

REPORT INFORMATION
  Report Type: Spontaneous
  Country: EU (occurrence: EU)
  Receive Date: 20240909
  Receipt Date: 20250725
  Transmission Date: 20251020
  Serious: Yes (Hospitalization)
  Sender: PFIZER
  Company Number: None

PATIENT
  Age: 48 Year
  Sex: Male

DRUGS (3)
  1. LINEZOLID [Suspect]
     Active Substance: LINEZOLID
     Indication: Pyelonephritis
     Dosage: 600 MG, 2X/DAY
     Route: 042
     Dates: end: 20240816
  2. IOMERON [Suspect]
     Active Substance: IOMEPROL
     Indication: Computerised tomogram abdomen abnormal
     Route: 042
     Dates: start: 20240704, end: 20240704
  3. TEICOPLANIN [Suspect]
     Active Substance: TEICOPLANIN
     Indication: Pyelonephritis
     Dosage: 6 MG/KG, 2X/DAY
     Route: 042
     Dates: start: 20240716, end: 20240808

REACTIONS (4)
  - Eosinophilia [Recovering/Resolving]
  - Pruritus [Recovering/Resolving]
  - Thrombocytopenia [Recovered/Resolved]
  - Off label use [Unknown]

NARRATIVE: CASE EVENT DATE: 20240802
